FAERS Safety Report 14659052 (Version 1)
Quarter: 2018Q1

REPORT INFORMATION
  Report Type: Spontaneous
  Country: GB (occurrence: GB)
  Receive Date: 20180320
  Receipt Date: 20180320
  Transmission Date: 20180509
  Serious: Yes (Hospitalization)
  Sender: FDA-Public Use
  Company Number: GB-ASTRAZENECA-2018SE31920

PATIENT
  Age: 58 Year
  Sex: Female
  Weight: 168 kg

DRUGS (18)
  1. DIGOXIN. [Concomitant]
     Active Substance: DIGOXIN
     Dates: start: 20171102
  2. CODEINE PHOSPHATE [Concomitant]
     Active Substance: CODEINE PHOSPHATE
     Dosage: INTERMITTENT, 1-2 TABLETS AT NIGHT FOR PAIN MAX FOUR TIMES DAILY
     Dates: start: 20180126, end: 20180223
  3. NITROFURANTOIN. [Concomitant]
     Active Substance: NITROFURANTOIN
     Dates: start: 20180115, end: 20180122
  4. SALBUTAMOL [Concomitant]
     Active Substance: ALBUTEROL
     Dosage: INHALE TWO TO SIX PUFFS VIA SPACER
     Route: 055
     Dates: start: 20180105, end: 20180202
  5. COLECALCIFEROL [Concomitant]
     Active Substance: CHOLECALCIFEROL
     Dosage: 1 DF ONCE A WEEK, FOR 7 WEEKS (RAPID CORRECTION OVER 18YRS)
     Dates: start: 20180223
  6. FUCIBET [Concomitant]
     Dosage: 2 DF, DAILY, TO AFFECTED AREAS FOR 2 WEEKS MAX
     Dates: start: 20180105, end: 20180202
  7. IBUPROFEN. [Concomitant]
     Active Substance: IBUPROFEN
     Indication: PAIN
     Dosage: 1 DF, INTERMITTENT, 3 TIMES DAILY
     Dates: start: 20170403
  8. METFORMIN [Concomitant]
     Active Substance: METFORMIN HYDROCHLORIDE
     Dates: start: 20170914
  9. PARACETAMOL [Concomitant]
     Active Substance: ACETAMINOPHEN
     Indication: ARTHRALGIA
     Dosage: INTERMITTENT, 2 DF, FOUR TIMES A DAY, MAXIMUM 8 IN 24 HOURS
     Dates: start: 20170403
  10. DAPAGLIFLOZIN. [Suspect]
     Active Substance: DAPAGLIFLOZIN
     Route: 048
     Dates: start: 20180108
  11. WARFARIN SODIUM. [Concomitant]
     Active Substance: WARFARIN SODIUM
     Dosage: TAKE AS DIRECTED IN YELLOW BOOK
     Dates: start: 20170914
  12. METANIUM [Concomitant]
     Dates: start: 20180105, end: 20180204
  13. DERMOL [Concomitant]
     Active Substance: BENZALKONIUM CHLORIDE\CHLORHEXIDINE HYDROCHLORIDE\ISOPROPYL MYRISTATE\PARAFFIN
     Dates: start: 20171102, end: 20180102
  14. CETOMACROGOL 1000 [Concomitant]
     Dosage: APPLY AS DIRECTED
     Dates: start: 20180126, end: 20180223
  15. ATORVASTATIN [Concomitant]
     Active Substance: ATORVASTATIN
     Dates: start: 20171102
  16. ZEROCREAM [Concomitant]
     Dosage: USE LIBERALLY AND REGULARLY AS DAILY MOISTURISER
     Dates: start: 20170914, end: 20180102
  17. FUROSEMIDE. [Concomitant]
     Active Substance: FUROSEMIDE
     Dosage: 1.0DF UNKNOWN
     Dates: start: 20171102
  18. BISOPROLOL [Concomitant]
     Active Substance: BISOPROLOL
     Dates: start: 20171102

REACTIONS (3)
  - Hyperhidrosis [Unknown]
  - Vomiting [Recovering/Resolving]
  - Abdominal pain [Recovering/Resolving]

NARRATIVE: CASE EVENT DATE: 20180223
